FAERS Safety Report 22315557 (Version 2)
Quarter: 2023Q2

REPORT INFORMATION
  Report Type: Spontaneous
  Country: US (occurrence: US)
  Receive Date: 20230512
  Receipt Date: 20230517
  Transmission Date: 20230722
  Serious: No
  Sender: FDA-Public Use
  Company Number: US-PFIZER INC-PV202300034889

PATIENT
  Age: 69 Year
  Sex: Female
  Weight: 82.1 kg

DRUGS (4)
  1. INLYTA [Suspect]
     Active Substance: AXITINIB
     Indication: Alveolar soft part sarcoma
     Dosage: 5 MG, 2X/DAY
  2. INLYTA [Suspect]
     Active Substance: AXITINIB
     Indication: Solar lentigo
  3. METOPROLOL [Concomitant]
     Active Substance: METOPROLOL
     Dosage: 12.5 MG, DAILY (A HALF OF PILL, THE 25 MILLIGRAMS BUT IT IS JUST HALF OF IT)
  4. AMLODIPINE [Concomitant]
     Active Substance: AMLODIPINE BESYLATE
     Dosage: 10 MG

REACTIONS (12)
  - Off label use [Unknown]
  - Pain [Unknown]
  - Musculoskeletal chest pain [Unknown]
  - Pain in extremity [Unknown]
  - Hyperkeratosis [Unknown]
  - Arthralgia [Unknown]
  - Tension [Unknown]
  - Pain in extremity [Unknown]
  - Hair colour changes [Unknown]
  - Limb discomfort [Unknown]
  - Dyspnoea [Unknown]
  - Feeling abnormal [Unknown]
